FAERS Safety Report 18944326 (Version 2)
Quarter: 2021Q2

REPORT INFORMATION
  Report Type: Other
  Country: PL (occurrence: PL)
  Receive Date: 20210226
  Receipt Date: 20210429
  Transmission Date: 20210717
  Serious: Yes (Other)
  Sender: FDA-Public Use
  Company Number: PL-ASPEN-GLO2020PL012607

PATIENT

DRUGS (17)
  1. ALEMTUZUMAB [Suspect]
     Active Substance: ALEMTUZUMAB
     Indication: PROPHYLAXIS AGAINST GRAFT VERSUS HOST DISEASE
  2. FLUDARABINE [Suspect]
     Active Substance: FLUDARABINE PHOSPHATE
     Indication: BONE MARROW CONDITIONING REGIMEN
     Dosage: 5X30 MG/M2
     Route: 065
  3. MYCOPHENOLATE MOFETIL. [Suspect]
     Active Substance: MYCOPHENOLATE MOFETIL
     Indication: PROPHYLAXIS AGAINST GRAFT VERSUS HOST DISEASE
     Dosage: UNK
     Route: 065
  4. CYCLOSPORIN A [Suspect]
     Active Substance: CYCLOSPORINE
     Indication: PROPHYLAXIS AGAINST GRAFT VERSUS HOST DISEASE
     Dosage: UNK
     Route: 065
  5. ETOPOSIDE. [Suspect]
     Active Substance: ETOPOSIDE
     Indication: XANTHOGRANULOMA
     Dosage: 5 X 4.4 MG/KG
     Route: 065
  6. METHOTREXATE. [Suspect]
     Active Substance: METHOTREXATE
     Indication: PROPHYLAXIS AGAINST GRAFT VERSUS HOST DISEASE
     Dosage: 3 DOSES (DAYS + 1, + 3, AND +6)
     Route: 065
  7. GANCICLOVIR. [Suspect]
     Active Substance: GANCICLOVIR
     Indication: CYTOMEGALOVIRUS INFECTION
     Dosage: UNK
     Route: 065
  8. BUSULFAN. [Suspect]
     Active Substance: BUSULFAN
     Indication: PROPHYLAXIS AGAINST GRAFT VERSUS HOST DISEASE
  9. IFOSFAMIDE. [Suspect]
     Active Substance: IFOSFAMIDE
     Indication: XANTHOGRANULOMA
     Dosage: 4.4 MG/KG
     Route: 065
  10. BUSULFAN. [Suspect]
     Active Substance: BUSULFAN
     Indication: BONE MARROW CONDITIONING REGIMEN
     Dosage: 4X4X1.2 MG/KG
     Route: 065
  11. CYCLOPHOSPHAMIDE. [Suspect]
     Active Substance: CYCLOPHOSPHAMIDE
     Indication: BONE MARROW CONDITIONING REGIMEN
     Dosage: 2X60 MG/KG
     Route: 065
  12. MELPHALAN. [Suspect]
     Active Substance: MELPHALAN
     Indication: PROPHYLAXIS AGAINST GRAFT VERSUS HOST DISEASE
     Dosage: 70 MG/M2
     Route: 065
  13. ALEMTUZUMAB [Suspect]
     Active Substance: ALEMTUZUMAB
     Indication: BONE MARROW CONDITIONING REGIMEN
     Dosage: 3X0.2 MG/KG
     Route: 065
  14. CYCLOPHOSPHAMIDE. [Suspect]
     Active Substance: CYCLOPHOSPHAMIDE
     Indication: PROPHYLAXIS AGAINST GRAFT VERSUS HOST DISEASE
  15. TREOSULFAN [Suspect]
     Active Substance: TREOSULFAN
     Indication: PROPHYLAXIS AGAINST GRAFT VERSUS HOST DISEASE
     Dosage: 36 G/M2
     Route: 065
  16. FLUDARABINE [Suspect]
     Active Substance: FLUDARABINE PHOSPHATE
     Indication: PROPHYLAXIS AGAINST GRAFT VERSUS HOST DISEASE
  17. FILGRASTIM [Concomitant]
     Active Substance: FILGRASTIM
     Indication: PRODUCT USED FOR UNKNOWN INDICATION
     Dosage: UNK
     Route: 065

REACTIONS (9)
  - Vascular device infection [Unknown]
  - Product use issue [Unknown]
  - Cytomegalovirus infection [Recovered/Resolved]
  - Epstein-Barr virus infection [Unknown]
  - Adenovirus infection [Unknown]
  - Lymphoproliferative disorder [Unknown]
  - BK virus infection [Unknown]
  - Off label use [Unknown]
  - Paresis [Not Recovered/Not Resolved]
